FAERS Safety Report 8477783 (Version 2)
Quarter: 2013Q2

REPORT INFORMATION
  Report Type: Report from Study
  Country: MX (occurrence: MX)
  Receive Date: 20120327
  Receipt Date: 20130422
  Transmission Date: 20140414
  Serious: Yes (Death, Hospitalization)
  Sender: FDA-Public Use
  Company Number: PHHY2012MX025762

PATIENT
  Age: 60 Year
  Sex: Male

DRUGS (2)
  1. EXFORGE [Suspect]
     Indication: HYPERTENSION
     Dosage: 1 DF (160MG VALS/10MG AMLO) DAILY
     Dates: start: 2010
  2. MAVIGLIN [Concomitant]
     Indication: DIABETES MELLITUS
     Dosage: 1 DF, DAILY
     Dates: end: 20120220

REACTIONS (8)
  - Bronchopneumonia [Fatal]
  - Electrolyte imbalance [Fatal]
  - Acid base balance abnormal [Fatal]
  - Blood urea increased [Unknown]
  - Blood creatinine increased [Unknown]
  - Blood glucose increased [Unknown]
  - Haemodialysis complication [Unknown]
  - Blood pressure decreased [Unknown]
